FAERS Safety Report 18731459 (Version 1)
Quarter: 2021Q1

REPORT INFORMATION
  Report Type: Spontaneous
  Country: CA (occurrence: CA)
  Receive Date: 20210112
  Receipt Date: 20210112
  Transmission Date: 20210419
  Serious: Yes (Death)
  Sender: FDA-Public Use
  Company Number: CA-TEVA-2020-CA-1864997

PATIENT
  Age: 33 Year
  Sex: Female

DRUGS (19)
  1. DOXORUBICIN [Suspect]
     Active Substance: DOXORUBICIN
     Route: 065
  2. DACTINOMYCIN [Suspect]
     Active Substance: DACTINOMYCIN
     Route: 065
  3. DOXORUBICIN [Suspect]
     Active Substance: DOXORUBICIN
     Indication: INVASIVE DUCTAL BREAST CARCINOMA
     Route: 065
  4. ETOPOSIDE. [Suspect]
     Active Substance: ETOPOSIDE
     Indication: METASTATIC NEOPLASM
     Route: 065
  5. COSMEGEN [Suspect]
     Active Substance: DACTINOMYCIN
     Indication: CHORIOCARCINOMA
     Route: 065
  6. GEMCITABINE HYDROCHLORIDE. [Suspect]
     Active Substance: GEMCITABINE HYDROCHLORIDE
     Indication: CHORIOCARCINOMA
     Route: 065
  7. TAXOL [Suspect]
     Active Substance: PACLITAXEL
     Indication: CHORIOCARCINOMA
     Route: 065
  8. ETOPOSIDE. [Suspect]
     Active Substance: ETOPOSIDE
     Indication: CHORIOCARCINOMA
  9. TRASTUZUMAB. [Suspect]
     Active Substance: TRASTUZUMAB
     Indication: INVASIVE DUCTAL BREAST CARCINOMA
     Route: 065
  10. VINCRISTINE SULFATE. [Suspect]
     Active Substance: VINCRISTINE SULFATE
     Indication: METASTATIC CHORIOCARCINOMA
     Route: 065
  11. PEGYLATED LIPOSOMAL DOXORUBICIN HYDROCHLORIDE [Suspect]
     Active Substance: DOXORUBICIN HYDROCHLORIDE
     Indication: CHORIOCARCINOMA
     Route: 065
  12. TRASTUZUMAB. [Suspect]
     Active Substance: TRASTUZUMAB
     Route: 065
  13. METHOTREXATE. [Suspect]
     Active Substance: METHOTREXATE
     Indication: CHORIOCARCINOMA
     Route: 065
  14. CYCLOPHOSPHAMIDE. [Suspect]
     Active Substance: CYCLOPHOSPHAMIDE
     Indication: CHORIOCARCINOMA
     Route: 065
  15. DACTINOMYCIN [Suspect]
     Active Substance: DACTINOMYCIN
     Indication: CHORIOCARCINOMA
     Route: 065
  16. PROCYTOX [Suspect]
     Active Substance: CYCLOPHOSPHAMIDE
     Indication: METASTATIC CHORIOCARCINOMA
     Route: 065
  17. TAXOTERE [Suspect]
     Active Substance: DOCETAXEL
     Indication: INVASIVE DUCTAL BREAST CARCINOMA
     Route: 042
  18. CISPLATIN. [Suspect]
     Active Substance: CISPLATIN
     Indication: CHORIOCARCINOMA
     Route: 065
  19. GEMCITABINE. [Suspect]
     Active Substance: GEMCITABINE
     Indication: CHORIOCARCINOMA
     Route: 065

REACTIONS (3)
  - Product use in unapproved indication [Fatal]
  - Second primary malignancy [Fatal]
  - Acute myeloid leukaemia [Fatal]
